FAERS Safety Report 21777646 (Version 2)
Quarter: 2023Q1

REPORT INFORMATION
  Report Type: Report from Study
  Country: US (occurrence: US)
  Receive Date: 20221226
  Receipt Date: 20230208
  Transmission Date: 20230417
  Serious: Yes (Hospitalization)
  Sender: FDA-Public Use
  Company Number: US-TAKEDA-2022TUS086313

PATIENT
  Sex: Male

DRUGS (1)
  1. MOBOCERTINIB [Suspect]
     Active Substance: MOBOCERTINIB
     Indication: Lung neoplasm malignant
     Dosage: 160 MILLIGRAM, QD
     Route: 048
     Dates: start: 20221026

REACTIONS (5)
  - Hospitalisation [Unknown]
  - Dizziness [Unknown]
  - Weight increased [Unknown]
  - Diarrhoea [Unknown]
  - Gait disturbance [Recovering/Resolving]
